FAERS Safety Report 15299202 (Version 2)
Quarter: 2018Q4

REPORT INFORMATION
  Report Type: Report from Study
  Country: AR (occurrence: AR)
  Receive Date: 20180821
  Receipt Date: 20181015
  Transmission Date: 20190204
  Serious: Yes (Other)
  Sender: FDA-Public Use
  Company Number: AR-BRISTOL-MYERS SQUIBB COMPANY-BMS-2018-078117

PATIENT
  Age: 78 Year
  Sex: Male

DRUGS (1)
  1. APIXABAN [Suspect]
     Active Substance: APIXABAN
     Indication: CEREBROVASCULAR ACCIDENT PROPHYLAXIS
     Dosage: 5 MG, BID (EVERY 12 HOURS)
     Route: 065
     Dates: start: 20180813

REACTIONS (1)
  - Arrhythmia [Unknown]

NARRATIVE: CASE EVENT DATE: 20180814
